FAERS Safety Report 8286597-2 (Version None)
Quarter: 2012Q2

REPORT INFORMATION
  Report Type: 
  Country: None (occurrence: None)
  Receive Date: 20120416
  Receipt Date: 20120406
  Transmission Date: 20120825
  Serious: Yes (Other)
  Sender: FDA-Public Use
  Company Number: US-JNJFOC-20120403488

PATIENT
  Sex: Female
  Weight: 63.5 kg

DRUGS (8)
  1. STELARA [Suspect]
     Indication: PUSTULAR PSORIASIS
     Route: 058
     Dates: start: 20100406
  2. ALL OTHER THERAPEUTIC PRODUCTS [Concomitant]
     Indication: PUSTULAR PSORIASIS
     Route: 061
  3. STELARA [Suspect]
     Indication: PSORIATIC ARTHROPATHY
     Route: 058
     Dates: start: 20100406
  4. STELARA [Suspect]
     Route: 058
     Dates: start: 20120124
  5. TRIAMTERENE AND HYDROCHLOROTHIAZIDE [Concomitant]
     Indication: HYPERTENSION
     Route: 048
  6. RESTASIS [Concomitant]
     Indication: DRY EYE
     Route: 047
  7. MELOXICAM [Concomitant]
     Route: 048
  8. STELARA [Suspect]
     Route: 058
     Dates: start: 20120124

REACTIONS (3)
  - HEADACHE [None]
  - POSTERIOR REVERSIBLE ENCEPHALOPATHY SYNDROME [None]
  - OFF LABEL USE [None]
